FAERS Safety Report 4904941-8 (Version None)
Quarter: 2006Q1

REPORT INFORMATION
  Report Type: 
  Country: None (occurrence: None)
  Receive Date: 20060207
  Receipt Date: 20060207
  Transmission Date: 20060701
  Serious: Yes (Other)
  Sender: FDA-Public Use
  Company Number: None

PATIENT
  Age: 72 Year
  Sex: Male
  Weight: 99.7913 kg

DRUGS (2)
  1. NIACIN [Suspect]
     Indication: HIGH DENSITY LIPOPROTEIN INCREASED
     Dosage: 250    BID    PO
     Route: 048
     Dates: start: 20040501, end: 20041001
  2. B COMPLEX ELX [Suspect]
     Indication: HIGH DENSITY LIPOPROTEIN INCREASED
     Dosage: 50   BID   PO
     Route: 048
     Dates: start: 20050201, end: 20051201

REACTIONS (5)
  - FAECAL INCONTINENCE [None]
  - PARASITIC INFECTION INTESTINAL [None]
  - STEATORRHOEA [None]
  - TREATMENT NONCOMPLIANCE [None]
  - WEIGHT DECREASED [None]
